FAERS Safety Report 23992004 (Version 1)
Quarter: 2024Q2

REPORT INFORMATION
  Report Type: Spontaneous
  Country: US (occurrence: US)
  Receive Date: 20240620
  Receipt Date: 20240620
  Transmission Date: 20240716
  Serious: No
  Sender: FDA-Public Use
  Company Number: US-ROCHE-10000000157

PATIENT
  Age: 18 Year
  Sex: Female

DRUGS (3)
  1. XOLAIR [Suspect]
     Active Substance: OMALIZUMAB
     Indication: Idiopathic urticaria
     Route: 058
  2. XOLAIR [Suspect]
     Active Substance: OMALIZUMAB
     Indication: Eosinophilic oesophagitis
  3. DUPIXENT [Concomitant]
     Active Substance: DUPILUMAB
     Indication: Idiopathic urticaria

REACTIONS (2)
  - Off label use [Unknown]
  - No adverse event [Unknown]
